FAERS Safety Report 5504787-6 (Version None)
Quarter: 2007Q4

REPORT INFORMATION
  Report Type: 
  Country: None (occurrence: None)
  Receive Date: 20071031
  Receipt Date: 20071031
  Transmission Date: 20080405
  Serious: No
  Sender: FDA-Public Use
  Company Number: None

PATIENT
  Sex: Female
  Weight: 58.9676 kg

DRUGS (1)
  1. METHYLPREDNISOLONE 4MG TAB [Suspect]
     Dosage: 6-5-4-3-2-1 TAPER PO
     Route: 048
     Dates: start: 20071011, end: 20071016

REACTIONS (3)
  - DRUG INEFFECTIVE [None]
  - PHARMACEUTICAL PRODUCT COUNTERFEIT [None]
  - THERAPEUTIC RESPONSE DECREASED [None]
